FAERS Safety Report 8089942-6 (Version None)
Quarter: 2012Q1

REPORT INFORMATION
  Report Type: 
  Country: None (occurrence: None)
  Receive Date: 20120129
  Receipt Date: 20110920
  Transmission Date: 20120608
  Serious: No
  Sender: FDA-Public Use
  Company Number: US-ABBOTT-11P-163-0857021-00

PATIENT
  Sex: Female

DRUGS (1)
  1. HUMIRA [Suspect]
     Indication: PRODUCT USED FOR UNKNOWN INDICATION
     Route: 058
     Dates: start: 20110824, end: 20110919

REACTIONS (5)
  - OEDEMA PERIPHERAL [None]
  - JOINT SWELLING [None]
  - SWELLING FACE [None]
  - THIRST [None]
  - DIZZINESS [None]
